FAERS Safety Report 16327697 (Version 1)
Quarter: 2019Q2

REPORT INFORMATION
  Report Type: Spontaneous
  Country: IT (occurrence: IT)
  Receive Date: 20190517
  Receipt Date: 20190517
  Transmission Date: 20190711
  Serious: Yes (Other)
  Sender: FDA-Public Use
  Company Number: PHHY2019IT112027

PATIENT
  Age: 40 Year
  Sex: Male

DRUGS (1)
  1. TASIGNA [Suspect]
     Active Substance: NILOTINIB
     Indication: CHRONIC MYELOID LEUKAEMIA
     Dosage: 300 MG, BID
     Route: 065
     Dates: start: 201710

REACTIONS (11)
  - Deafness unilateral [Unknown]
  - Rash [Unknown]
  - Hypoacusis [Unknown]
  - Dizziness [Unknown]
  - Pain [Unknown]
  - Schwannoma [Unknown]
  - Headache [Unknown]
  - Confusional state [Unknown]
  - Ear discomfort [Unknown]
  - Nausea [Unknown]
  - Balance disorder [Unknown]

NARRATIVE: CASE EVENT DATE: 201710
